FAERS Safety Report 10207688 (Version 1)
Quarter: 2014Q2

REPORT INFORMATION
  Report Type: Spontaneous
  Country: US (occurrence: None)
  Receive Date: 20140527
  Receipt Date: 20140527
  Transmission Date: 20141212
  Serious: Yes (Hospitalization)
  Sender: FDA-Public Use
  Company Number: None

PATIENT
  Age: 37 Year
  Sex: Female

DRUGS (2)
  1. AMOXICILLIN [Suspect]
     Dates: start: 20130118, end: 20130201
  2. TINIDAZOLE [Suspect]
     Dates: start: 20130118, end: 20130201

REACTIONS (9)
  - Nausea [None]
  - Vomiting [None]
  - Jaundice [None]
  - Abdominal pain upper [None]
  - Alanine aminotransferase increased [None]
  - Aspartate aminotransferase increased [None]
  - Drug-induced liver injury [None]
  - Hepatotoxicity [None]
  - Hepatic necrosis [None]
